FAERS Safety Report 10171027 (Version 1)
Quarter: 2014Q2

REPORT INFORMATION
  Report Type: Spontaneous
  Country: US (occurrence: None)
  Receive Date: 20140512
  Receipt Date: 20140512
  Transmission Date: 20141212
  Serious: Yes (Other)
  Sender: FDA-Public Use
  Company Number: 2014P1003805

PATIENT
  Age: 18 Year
  Sex: Male

DRUGS (2)
  1. MYORISAN [Suspect]
     Dates: start: 20140326
  2. MYORISAN [Suspect]
     Dates: start: 20140103

REACTIONS (1)
  - Mood swings [None]
